FAERS Safety Report 16761242 (Version 1)
Quarter: 2019Q3

REPORT INFORMATION
  Report Type: Spontaneous
  Country: US (occurrence: US)
  Receive Date: 20190830
  Receipt Date: 20190830
  Transmission Date: 20191005
  Serious: No
  Sender: FDA-Public Use
  Company Number: US-ANIPHARMA-2019-US-013674

PATIENT
  Sex: 0

DRUGS (3)
  1. ANASTROZOLE. [Suspect]
     Active Substance: ANASTROZOLE
     Indication: PRODUCT USED FOR UNKNOWN INDICATION
     Dosage: UNK
     Route: 065
  2. IBRANCE [Suspect]
     Active Substance: PALBOCICLIB
     Dosage: 125MG DAILY 21 DAYS ON AND 7 DAYS OFF
     Route: 048
     Dates: start: 20190411
  3. FASLODEX [Suspect]
     Active Substance: FULVESTRANT
     Route: 065

REACTIONS (7)
  - Hot flush [Recovering/Resolving]
  - Tendon disorder [Not Recovered/Not Resolved]
  - Spondylitis [Not Recovered/Not Resolved]
  - Arthralgia [Not Recovered/Not Resolved]
  - Obesity [Not Recovered/Not Resolved]
  - Leukopenia [Unknown]
  - Fatigue [Not Recovered/Not Resolved]
